FAERS Safety Report 6048549-2 (Version None)
Quarter: 2009Q1

REPORT INFORMATION
  Report Type: 
  Country: None (occurrence: None)
  Receive Date: 20090123
  Receipt Date: 20090115
  Transmission Date: 20090719
  Serious: Yes (Hospitalization, Other)
  Sender: FDA-Public Use
  Company Number: US-AVENTIS-200910464US

PATIENT
  Age: 61 Year
  Sex: Male

DRUGS (4)
  1. LANTUS [Suspect]
     Route: 058
  2. OPTICLIK (INSULIN INJECTION PEN) [Suspect]
  3. GLUCOPHAGE [Concomitant]
     Dosage: DOSE: UNK
  4. NICOTROL [Concomitant]
     Dosage: DOSE: UNK

REACTIONS (3)
  - BLOOD GLUCOSE INCREASED [None]
  - CATARACT [None]
  - PANCREATITIS [None]
